FAERS Safety Report 11696356 (Version 2)
Quarter: 2015Q4

REPORT INFORMATION
  Report Type: Spontaneous
  Country: JP (occurrence: JP)
  Receive Date: 20151104
  Receipt Date: 20151112
  Transmission Date: 20160304
  Serious: Yes (Hospitalization)
  Sender: FDA-Public Use
  Company Number: JP-ASTRAZENECA-2015SF05359

PATIENT
  Age: 93 Year
  Sex: Female

DRUGS (2)
  1. HOKUNALIN [Concomitant]
     Active Substance: TULOBUTEROL
     Dosage: DOSE UNKNOWN
     Route: 048
     Dates: start: 2015
  2. SYMBICORT [Suspect]
     Active Substance: BUDESONIDE\FORMOTEROL FUMARATE DIHYDRATE
     Indication: COUGH
     Dosage: 1 DF TWO TIMES A DAY
     Route: 055
     Dates: start: 201508

REACTIONS (2)
  - Herpes zoster [Unknown]
  - Drug effect incomplete [Unknown]

NARRATIVE: CASE EVENT DATE: 2015
